FAERS Safety Report 5452235-7 (Version None)
Quarter: 2007Q3

REPORT INFORMATION
  Report Type: 
  Country: None (occurrence: None)
  Receive Date: 20070912
  Receipt Date: 20070912
  Transmission Date: 20080115
  Serious: Yes (Hospitalization)
  Sender: FDA-Public Use
  Company Number: None

PATIENT
  Sex: Male
  Weight: 107.09 kg

DRUGS (1)
  1. TAXOTERE [Suspect]
     Dosage: 160.5 MG

REACTIONS (4)
  - DIARRHOEA [None]
  - FATIGUE [None]
  - FEBRILE NEUTROPENIA [None]
  - PAIN [None]
